FAERS Safety Report 8881249 (Version 1)
Quarter: 2012Q4

REPORT INFORMATION
  Report Type: 
  Country: FR (occurrence: FR)
  Receive Date: 20121031
  Receipt Date: 20121031
  Transmission Date: 20130627
  Serious: Yes (Death)
  Sender: FDA-Public Use
  Company Number: FR-MYLANLABS-2012S1022087

PATIENT
  Age: 37 Year
  Sex: Male
  Weight: 62 kg

DRUGS (2)
  1. ROPINIROLE [Suspect]
     Indication: OVERDOSE
     Route: 065
  2. PARACETAMOL [Concomitant]
     Route: 065

REACTIONS (3)
  - Overdose [Fatal]
  - Toxicity to various agents [Fatal]
  - Arrhythmia [Fatal]
